FAERS Safety Report 12708323 (Version 3)
Quarter: 2017Q1

REPORT INFORMATION
  Report Type: Spontaneous
  Country: JP (occurrence: JP)
  Receive Date: 20160901
  Receipt Date: 20170201
  Transmission Date: 20170428
  Serious: Yes (Other)
  Sender: FDA-Public Use
  Company Number: JP-CELGENEUS-JPN-2016088345

PATIENT
  Age: 70 Year
  Sex: Female

DRUGS (1)
  1. ABRAXANE [Suspect]
     Active Substance: PACLITAXEL
     Indication: PRODUCT USED FOR UNKNOWN INDICATION
     Dosage: 150 MILLIGRAM
     Route: 041
     Dates: start: 20160115, end: 20161202

REACTIONS (7)
  - Erythema [Recovered/Resolved]
  - Bone marrow failure [Recovering/Resolving]
  - Neuropathy peripheral [Recovering/Resolving]
  - Peripheral swelling [Recovered/Resolved]
  - Onychomadesis [Unknown]
  - Skin exfoliation [Recovered/Resolved]
  - Palmar-plantar erythrodysaesthesia syndrome [Recovered/Resolved]

NARRATIVE: CASE EVENT DATE: 201607
